FAERS Safety Report 6013012-1 (Version None)
Quarter: 2008Q4

REPORT INFORMATION
  Report Type: 
  Country: None (occurrence: None)
  Receive Date: 20081219
  Receipt Date: 20081212
  Transmission Date: 20090506
  Serious: Yes (Other)
  Sender: FDA-Public Use
  Company Number: US-ALLERGAN-0814577US

PATIENT
  Sex: Female

DRUGS (4)
  1. RESTASIS [Suspect]
     Indication: DRY EYE
     Dosage: 1 GTT, BID
     Route: 047
     Dates: start: 20080902, end: 20081107
  2. RESTASIS [Suspect]
     Indication: KERATOCONJUNCTIVITIS SICCA
     Dosage: 1 GTT, BID
     Route: 047
     Dates: start: 20080902, end: 20081107
  3. ^OTHER DROPS^ [Concomitant]
     Indication: DRY EYE
     Dosage: UNK, UNKNOWN
     Route: 047
  4. VIGAMOX [Concomitant]
     Dosage: UNK, QID
     Route: 047

REACTIONS (3)
  - CORNEAL ABRASION [None]
  - DRUG INEFFECTIVE [None]
  - SUPERFICIAL INJURY OF EYE [None]
